FAERS Safety Report 7463802-3 (Version None)
Quarter: 2011Q2

REPORT INFORMATION
  Report Type: 
  Country: None (occurrence: None)
  Receive Date: 20110506
  Receipt Date: 20110428
  Transmission Date: 20111010
  Serious: Yes (Other)
  Sender: FDA-Public Use
  Company Number: BR-SANOFI-AVENTIS-2011SA026588

PATIENT
  Age: 69 Year
  Sex: Female
  Weight: 75 kg

DRUGS (3)
  1. LANTUS [Suspect]
     Route: 058
  2. LANTUS [Suspect]
     Route: 058
  3. NIFEDIPINE [Concomitant]

REACTIONS (3)
  - BLOOD GLUCOSE INCREASED [None]
  - CEREBROVASCULAR ACCIDENT [None]
  - HYPOAESTHESIA [None]
